FAERS Safety Report 8131610-6 (Version None)
Quarter: 2012Q1

REPORT INFORMATION
  Report Type: 
  Country: None (occurrence: None)
  Receive Date: 20120213
  Receipt Date: 20120209
  Transmission Date: 20120608
  Serious: No
  Sender: FDA-Public Use
  Company Number: US-PFIZER INC-2012032363

PATIENT
  Sex: Female
  Weight: 68.027 kg

DRUGS (9)
  1. BACLOFEN [Concomitant]
     Indication: PAIN
     Dosage: UNK
     Route: 037
  2. SOMA [Concomitant]
     Indication: MUSCLE RELAXANT THERAPY
  3. MORPHINE [Concomitant]
     Indication: PAIN
     Dosage: UNK
  4. CHANTIX [Suspect]
     Indication: SMOKING CESSATION THERAPY
     Dosage: 0.5 MG, 1X/DAY
     Route: 048
     Dates: start: 20080101, end: 20080101
  5. SOMA [Concomitant]
     Indication: PAIN
     Dosage: UNK
  6. DILAUDID [Concomitant]
     Indication: PAIN
     Dosage: UNK, AS NEEDED
  7. CHANTIX [Suspect]
     Dosage: UNK
     Route: 048
     Dates: start: 20100101, end: 20100101
  8. FENTANYL [Concomitant]
     Indication: PAIN
     Dosage: UNK, AS NEEDED
  9. TRAZODONE [Concomitant]
     Indication: PAIN
     Dosage: UNK

REACTIONS (3)
  - ABNORMAL DREAMS [None]
  - THERAPEUTIC RESPONSE UNEXPECTED [None]
  - DRUG INEFFECTIVE [None]
